FAERS Safety Report 20365705 (Version 1)
Quarter: 2022Q1

REPORT INFORMATION
  Report Type: Spontaneous
  Country: US (occurrence: US)
  Receive Date: 20220123
  Receipt Date: 20220123
  Transmission Date: 20220424
  Serious: No
  Sender: FDA-Public Use
  Company Number: US-JNJFOC-20220127037

PATIENT
  Age: 7 Year
  Sex: Male

DRUGS (3)
  1. RISPERDAL [Suspect]
     Active Substance: RISPERIDONE
     Indication: Aggression
     Dosage: HALF TABLET IN THE MORNING AND ONE TABLET AT NIGHT
     Route: 048
     Dates: start: 20000629
  2. RISPERDAL [Suspect]
     Active Substance: RISPERIDONE
     Route: 048
     Dates: end: 20070822
  3. RISPERDAL [Suspect]
     Active Substance: RISPERIDONE
     Dosage: ONE AND HALF TABLET AT BED TIME
     Route: 048
     Dates: start: 20070822

REACTIONS (2)
  - Off label use [Unknown]
  - Wrong technique in product usage process [Unknown]

NARRATIVE: CASE EVENT DATE: 20000629
